FAERS Safety Report 11319418 (Version 2)
Quarter: 2015Q3

REPORT INFORMATION
  Report Type: Spontaneous
  Country: FR (occurrence: FR)
  Receive Date: 20150729
  Receipt Date: 20150731
  Transmission Date: 20151125
  Serious: Yes (Hospitalization)
  Sender: FDA-Public Use
  Company Number: FR-ASTRAZENECA-2015SE71938

PATIENT
  Age: 15063 Day
  Sex: Female
  Weight: 69 kg

DRUGS (2)
  1. IMOVANE [Concomitant]
     Active Substance: ZOPICLONE
  2. XEROQUEL [Suspect]
     Active Substance: QUETIAPINE FUMARATE
     Indication: MANIA
     Route: 048
     Dates: start: 20150623, end: 20150715

REACTIONS (2)
  - Hepatitis [Not Recovered/Not Resolved]
  - Affective disorder [Unknown]

NARRATIVE: CASE EVENT DATE: 20150707
